FAERS Safety Report 9127795 (Version 1)
Quarter: 2013Q1

REPORT INFORMATION
  Report Type: Spontaneous
  Country: US (occurrence: US)
  Receive Date: 20130228
  Receipt Date: 20130228
  Transmission Date: 20140127
  Serious: No
  Sender: FDA-Public Use
  Company Number: US-GLAXOSMITHKLINE-A0999745A

PATIENT
  Sex: Female

DRUGS (2)
  1. LAMOTRIGINE [Suspect]
     Indication: CONVULSION
     Dosage: 400MG PER DAY
     Route: 048
     Dates: start: 2012, end: 2012
  2. LAMICTAL [Suspect]
     Indication: CONVULSION
     Dosage: 400MG PER DAY
     Route: 048

REACTIONS (2)
  - Rash generalised [Recovered/Resolved]
  - Surgery [Unknown]
